FAERS Safety Report 16055560 (Version 1)
Quarter: 2019Q1

REPORT INFORMATION
  Report Type: Spontaneous
  Country: SE (occurrence: SE)
  Receive Date: 20190311
  Receipt Date: 20190311
  Transmission Date: 20190418
  Serious: Yes (Other)
  Sender: FDA-Public Use
  Company Number: SE-009507513-1903SWE003961

PATIENT
  Sex: Male

DRUGS (1)
  1. AERIUS (DESLORATADINE) [Suspect]
     Active Substance: DESLORATADINE
     Dosage: 0.5 MG/ML
     Dates: start: 2018

REACTIONS (1)
  - Narcolepsy [Unknown]

NARRATIVE: CASE EVENT DATE: 2018
